FAERS Safety Report 23198597 (Version 1)
Quarter: 2023Q4

REPORT INFORMATION
  Report Type: Spontaneous
  Country: US (occurrence: US)
  Receive Date: 20231117
  Receipt Date: 20231117
  Transmission Date: 20240110
  Serious: Yes (Other)
  Sender: FDA-Public Use
  Company Number: US-BAYER-2023A162908

PATIENT

DRUGS (1)
  1. AFRIN NO DRIP SEVERE CONGESTION [Suspect]
     Active Substance: OXYMETAZOLINE HYDROCHLORIDE
     Route: 045

REACTIONS (2)
  - Drug dependence [Unknown]
  - Dyspnoea [Unknown]
